FAERS Safety Report 15227634 (Version 1)
Quarter: 2018Q3

REPORT INFORMATION
  Report Type: Spontaneous
  Country: CN (occurrence: CN)
  Receive Date: 20180801
  Receipt Date: 20180801
  Transmission Date: 20181010
  Serious: Yes (Other)
  Sender: FDA-Public Use
  Company Number: CN-LEO PHARMA-288930

PATIENT
  Age: 30 Year
  Sex: Female

DRUGS (3)
  1. TANSHINON [Concomitant]
     Indication: HYPERSENSITIVITY
     Dosage: UNK UNK, UNKNOWN FREQ.
     Route: 048
     Dates: start: 20150405
  2. PROTOPIC [Suspect]
     Active Substance: TACROLIMUS
     Indication: HYPERSENSITIVITY
     Dosage: UNK, UNKNOWN FREQ.
     Route: 061
     Dates: start: 20150405, end: 20150501
  3. MIZOLASTINE [Concomitant]
     Active Substance: MIZOLASTINE
     Indication: HYPERSENSITIVITY
     Dosage: UNK UNK, UNKNOWN FREQ.
     Route: 048
     Dates: start: 20150405

REACTIONS (4)
  - Product use in unapproved indication [Recovered/Resolved]
  - Application site pain [Recovered/Resolved]
  - Application site pruritus [Recovered/Resolved]
  - Hypersensitivity [Recovered/Resolved]

NARRATIVE: CASE EVENT DATE: 20150405
